FAERS Safety Report 4394659-5 (Version None)
Quarter: 2004Q3

REPORT INFORMATION
  Report Type: 
  Country: None (occurrence: None)
  Receive Date: 20040706
  Receipt Date: 20040623
  Transmission Date: 20050211
  Serious: Yes (Hospitalization, Other)
  Sender: FDA-Public Use
  Company Number: 2004031163

PATIENT
  Age: 77 Year
  Sex: Male
  Weight: 88.4514 kg

DRUGS (15)
  1. TIKOSYN (DOFETILIDE) [Suspect]
     Indication: ARRHYTHMIA
     Dosage: 750 MCG (375 MCG, 2 IN 1D), ORAL
     Route: 048
     Dates: start: 20040722
  2. LEVOFLOXACIN [Suspect]
     Indication: ILL-DEFINED DISORDER
     Dosage: INTRAVENOUS
     Route: 042
     Dates: start: 20040401, end: 20040501
  3. LEVOFLOXACIN [Suspect]
     Indication: ILL-DEFINED DISORDER
     Dosage: INTRAVENOUS
     Route: 042
     Dates: start: 20040501, end: 20040501
  4. POTASSIUM (POTASSIUM) [Concomitant]
  5. MAGNESIUM (MAGNESIUM) [Concomitant]
  6. FUROSEMDIE (FUROSEMIDE) [Concomitant]
  7. IRBESARTAN (IRBESARTAN) [Concomitant]
  8. NITROGLYCERIN [Concomitant]
  9. WARFARIN SODIUM (EARFARIN SODIUM) [Concomitant]
  10. PREDNISONE TAB [Concomitant]
  11. ALL OTEHR THERAPEUTIC PRODUCTS (ALL OTEHR THERAPEUTIC PRODUCTS ) [Concomitant]
  12. SALMETEROL XINAFOATE(SALMETEROL XINAFOATE) [Concomitant]
  13. COMBIVENT [Concomitant]
  14. MORCIZINE HYDROCHLORIDE(MORCAXIZINE HYDROCHLORIDE) [Concomitant]
  15. MAGNESIUM OXIDE (MAGNESIUM OXIDE) [Concomitant]

REACTIONS (11)
  - ANURIA [None]
  - ARRHYTHMIA [None]
  - BLADDER DISORDER [None]
  - BLADDER MASS [None]
  - BLOOD URINE [None]
  - CONDITION AGGRAVATED [None]
  - DIARRHOEA [None]
  - DRUG EFFECT DECREASED [None]
  - DRUG INTERACTION [None]
  - HAEMORRHAGE URINARY TRACT [None]
  - URETERIC OBSTRUCTION [None]
